FAERS Safety Report 20768547 (Version 1)
Quarter: 2022Q2

REPORT INFORMATION
  Report Type: Spontaneous
  Country: PK (occurrence: PK)
  Receive Date: 20220429
  Receipt Date: 20220429
  Transmission Date: 20220721
  Serious: Yes (Other)
  Sender: FDA-Public Use
  Company Number: PK-SA-2022SA139931

PATIENT
  Age: 55 Year
  Sex: Male

DRUGS (9)
  1. RIFATER [Suspect]
     Active Substance: ISONIAZID\PYRAZINAMIDE\RIFAMPIN
     Indication: Lymphadenopathy
     Dosage: UNK UNK, QD 6 TABLETS
  2. RIFATER [Suspect]
     Active Substance: ISONIAZID\PYRAZINAMIDE\RIFAMPIN
     Indication: Tuberculosis
  3. ISONIAZID [Suspect]
     Active Substance: ISONIAZID
     Indication: Lymphadenopathy
     Dosage: UNK
  4. ISONIAZID [Suspect]
     Active Substance: ISONIAZID
     Indication: Tuberculosis
  5. MOXIFLOXACIN HYDROCHLORIDE [Suspect]
     Active Substance: MOXIFLOXACIN HYDROCHLORIDE
     Indication: Lymphadenopathy
     Dosage: 400 MG, QD
  6. MOXIFLOXACIN HYDROCHLORIDE [Suspect]
     Active Substance: MOXIFLOXACIN HYDROCHLORIDE
     Indication: Tuberculosis
  7. PYRIDOXINE [Concomitant]
     Active Substance: PYRIDOXINE
     Dosage: 25 MG, QD
  8. RIFAMPIN [Concomitant]
     Active Substance: RIFAMPIN
     Indication: Lymphadenopathy
     Dosage: UNK
  9. RIFAMPIN [Concomitant]
     Active Substance: RIFAMPIN
     Indication: Tuberculosis

REACTIONS (10)
  - Peritonitis [Recovered/Resolved]
  - Abdominal distension [Recovered/Resolved]
  - Peritoneal cloudy effluent [Recovered/Resolved]
  - Neuropathy peripheral [Unknown]
  - Jarisch-Herxheimer reaction [Unknown]
  - Condition aggravated [Unknown]
  - Nausea [Unknown]
  - Pyrexia [Unknown]
  - Malaise [Unknown]
  - Dizziness [Unknown]
